FAERS Safety Report 6480831-7 (Version None)
Quarter: 2009Q4

REPORT INFORMATION
  Report Type: 
  Country: None (occurrence: None)
  Receive Date: 20091203
  Receipt Date: 20091123
  Transmission Date: 20100525
  Serious: Yes (Hospitalization)
  Sender: FDA-Public Use
  Company Number: TPA2009A03925

PATIENT
  Age: 75 Year
  Sex: Female
  Weight: 96.1 kg

DRUGS (13)
  1. PREVACID [Suspect]
     Indication: GASTROOESOPHAGEAL REFLUX DISEASE
     Dosage: 30 MG, 1 IN 1 D, PER ORAL
     Route: 048
     Dates: start: 20080601
  2. PREVACID [Suspect]
     Indication: HELICOBACTER INFECTION
     Dosage: 30 MG, 1 IN 1 D, PER ORAL
     Route: 048
     Dates: start: 20080601
  3. LEVOXYL [Concomitant]
  4. DYAZIDE [Concomitant]
  5. EVISTA [Concomitant]
  6. CALCIUM (CALCIUM) [Concomitant]
  7. UNKNOWN BETA BLOCKING AGENTS (BETA BLOCKING AGENTS) [Concomitant]
  8. ACETAMINOPHEN [Concomitant]
  9. PREMARIN [Concomitant]
  10. CLINDAMYCIN HCL [Concomitant]
  11. ASCORBIC ACID [Concomitant]
  12. FERROUS SULFATE TAB [Concomitant]
  13. CENTRUM (VITAMINS NOS, MINERALS NOS) [Concomitant]

REACTIONS (3)
  - ABNORMAL FAECES [None]
  - ATRIAL FIBRILLATION [None]
  - PAROSMIA [None]
